FAERS Safety Report 4964381-2 (Version None)
Quarter: 2006Q2

REPORT INFORMATION
  Report Type: 
  Country: None (occurrence: None)
  Receive Date: 20060406
  Receipt Date: 20060315
  Transmission Date: 20061013
  Serious: Yes (Hospitalization)
  Sender: FDA-Public Use
  Company Number: PHEH2006US03494

PATIENT
  Sex: Female

DRUGS (6)
  1. MIACALCIN [Suspect]
     Indication: OSTEOPOROSIS
     Dosage: 1 SPRAY ALTERNATE NOSTIL DAILY
  2. NITROGLYCERIN [Concomitant]
  3. LISINOPRIL [Concomitant]
  4. RANITIDINE [Concomitant]
  5. CHEMOTHERAPEUTICS,OTHER [Concomitant]
  6. ASPIRIN [Concomitant]

REACTIONS (4)
  - ABDOMINAL PAIN [None]
  - ANAEMIA [None]
  - HEADACHE [None]
  - TREATMENT NONCOMPLIANCE [None]
